FAERS Safety Report 6782523-3 (Version None)
Quarter: 2010Q2

REPORT INFORMATION
  Report Type: 
  Country: None (occurrence: None)
  Receive Date: 20100616
  Receipt Date: 20100513
  Transmission Date: 20101027
  Serious: Yes (Death, Hospitalization)
  Sender: FDA-Public Use
  Company Number: 590062

PATIENT
  Age: 64 Year
  Sex: Male

DRUGS (2)
  1. OXALIPLATIN [Suspect]
     Indication: RECTAL CANCER
     Dosage: 1 CYCLE, UNKNOWN, INTRAVENOUS DRIP
     Route: 041
     Dates: start: 20100205, end: 20100205
  2. CAPECITABINE [Suspect]
     Indication: RECTAL CANCER
     Dates: start: 20100205

REACTIONS (2)
  - DIARRHOEA [None]
  - MUCOSAL INFLAMMATION [None]
